FAERS Safety Report 8478754-7 (Version None)
Quarter: 2012Q2

REPORT INFORMATION
  Report Type: 
  Country: None (occurrence: None)
  Receive Date: 20120629
  Receipt Date: 20120627
  Transmission Date: 20120825
  Serious: Yes (Death)
  Sender: FDA-Public Use
  Company Number: US-ROCHE-1082669

PATIENT
  Age: 73 Year
  Sex: Female

DRUGS (3)
  1. CARBOPLATIN [Concomitant]
     Indication: OVARIAN CANCER
     Route: 042
  2. TAXOL [Concomitant]
     Indication: OVARIAN CANCER
     Dosage: REPORTED AS TAXEL
     Route: 042
  3. AVASTIN [Suspect]
     Indication: OVARIAN CANCER
     Route: 042
     Dates: start: 20110101

REACTIONS (1)
  - DEATH [None]
